FAERS Safety Report 25595794 (Version 2)
Quarter: 2025Q3

REPORT INFORMATION
  Report Type: Spontaneous
  Country: US (occurrence: US)
  Receive Date: 20250723
  Receipt Date: 20250730
  Transmission Date: 20251021
  Serious: No
  Sender: PFIZER
  Company Number: US-PFIZER INC-PV202400071529

PATIENT
  Age: 72 Year
  Sex: Female

DRUGS (1)
  1. IBRANCE [Suspect]
     Active Substance: PALBOCICLIB

REACTIONS (9)
  - Muscle spasms [Unknown]
  - Dry eye [Unknown]
  - Lacrimation increased [Unknown]
  - Alopecia [Unknown]
  - Constipation [Recovered/Resolved]
  - Arthralgia [Unknown]
  - Bone pain [Unknown]
  - Stomatitis [Unknown]
  - Pruritus [Unknown]
